FAERS Safety Report 5015727-0 (Version None)
Quarter: 2006Q2

REPORT INFORMATION
  Report Type: 
  Country: None (occurrence: None)
  Receive Date: 20060601
  Receipt Date: 20060529
  Transmission Date: 20061013
  Serious: Yes (Hospitalization)
  Sender: FDA-Public Use
  Company Number: 2006CG00931

PATIENT
  Age: 87 Year
  Sex: Female
  Weight: 72 kg

DRUGS (4)
  1. ATACAND [Suspect]
     Route: 048
     Dates: end: 20060301
  2. ESIDRIX [Concomitant]
     Route: 048
     Dates: end: 20060413
  3. AMLOR [Concomitant]
     Route: 048
  4. BISOPROLOL FUMARATE [Concomitant]
     Route: 048

REACTIONS (2)
  - CONFUSIONAL STATE [None]
  - GENERALISED OEDEMA [None]
